FAERS Safety Report 23340384 (Version 1)
Quarter: 2023Q4

REPORT INFORMATION
  Report Type: Other
  Country: CN (occurrence: None)
  Receive Date: 20231227
  Receipt Date: 20231227
  Transmission Date: 20240109
  Serious: Yes (Other)
  Sender: FDA-Public Use
  Company Number: CN-ROCHE-3480678

PATIENT

DRUGS (7)
  1. BEVACIZUMAB [Suspect]
     Active Substance: BEVACIZUMAB
     Indication: Neoplasm malignant
     Route: 065
  2. TRASTUZUMAB [Suspect]
     Active Substance: TRASTUZUMAB
     Indication: Neoplasm malignant
     Route: 065
  3. CATEQUENTINIB [Suspect]
     Active Substance: CATEQUENTINIB
     Indication: Neoplasm malignant
     Route: 065
  4. AFATINIB [Suspect]
     Active Substance: AFATINIB
     Indication: Neoplasm malignant
     Route: 065
  5. AXITINIB [Suspect]
     Active Substance: AXITINIB
     Indication: Neoplasm malignant
     Route: 065
  6. APATINIB [Suspect]
     Active Substance: APATINIB
     Indication: Neoplasm malignant
     Route: 065
  7. DISITAMAB VEDOTIN [Suspect]
     Active Substance: DISITAMAB VEDOTIN
     Indication: Neoplasm malignant
     Route: 065

REACTIONS (6)
  - Colitis [Unknown]
  - Pancreatitis [Unknown]
  - Hypothyroidism [Unknown]
  - Adrenal insufficiency [Unknown]
  - Hepatitis [Unknown]
  - Myositis [Unknown]
